FAERS Safety Report 19756021 (Version 1)
Quarter: 2021Q3

REPORT INFORMATION
  Report Type: Report from Study
  Country: CA (occurrence: CA)
  Receive Date: 20210827
  Receipt Date: 20210827
  Transmission Date: 20211014
  Serious: Yes (Other)
  Sender: FDA-Public Use
  Company Number: CA-PFIZER INC-202101069884

PATIENT
  Age: 67 Day
  Sex: Female

DRUGS (11)
  1. CALCIUM [Concomitant]
     Active Substance: CALCIUM
     Route: 065
  2. SOLIRIS [Suspect]
     Active Substance: ECULIZUMAB
     Indication: MYASTHENIA GRAVIS
     Dosage: 1200 MG, 1 EVERY 2 WEEKS
     Route: 042
  3. METFORMIN [Concomitant]
     Active Substance: METFORMIN HYDROCHLORIDE
     Route: 065
  4. METHOTREXATE SODIUM. [Suspect]
     Active Substance: METHOTREXATE SODIUM
     Route: 065
  5. PREDNISONE. [Concomitant]
     Active Substance: PREDNISONE
     Dosage: 5 MG, 1 EVERY 1 DAYS
     Route: 048
  6. SOLIRIS [Suspect]
     Active Substance: ECULIZUMAB
     Indication: MYASTHENIA GRAVIS
     Dosage: 900 MG, 1 EVERY 1 WEEKS
     Route: 042
  7. SOLIRIS [Suspect]
     Active Substance: ECULIZUMAB
     Dosage: 1200 MG, 1 EVERY 2 WEEKS
     Route: 042
  8. SOLIRIS [Suspect]
     Active Substance: ECULIZUMAB
     Dosage: 1200 MG, 1 EVERY 2 WEEKS
     Route: 042
  9. FOLIC ACID. [Concomitant]
     Active Substance: FOLIC ACID
     Route: 065
  10. MESTINON [Concomitant]
     Active Substance: PYRIDOSTIGMINE BROMIDE
     Route: 048
  11. MYCOPHENOLATE MOFETIL. [Suspect]
     Active Substance: MYCOPHENOLATE MOFETIL
     Route: 065

REACTIONS (20)
  - Choking [Not Recovered/Not Resolved]
  - Headache [Not Recovered/Not Resolved]
  - Symptom recurrence [Not Recovered/Not Resolved]
  - Alopecia [Not Recovered/Not Resolved]
  - Diplopia [Not Recovered/Not Resolved]
  - Dyspnoea exertional [Not Recovered/Not Resolved]
  - Gastroenteritis [Not Recovered/Not Resolved]
  - Diarrhoea [Not Recovered/Not Resolved]
  - Eyelid ptosis [Not Recovered/Not Resolved]
  - Fatigue [Not Recovered/Not Resolved]
  - Blood pressure diastolic decreased [Not Recovered/Not Resolved]
  - Treatment failure [Not Recovered/Not Resolved]
  - Body temperature decreased [Not Recovered/Not Resolved]
  - Muscular weakness [Not Recovered/Not Resolved]
  - Insomnia [Not Recovered/Not Resolved]
  - Nausea [Not Recovered/Not Resolved]
  - Blood pressure systolic increased [Not Recovered/Not Resolved]
  - Dysstasia [Not Recovered/Not Resolved]
  - Myalgia [Not Recovered/Not Resolved]
  - SARS-CoV-2 test negative [Not Recovered/Not Resolved]
